FAERS Safety Report 13418523 (Version 8)
Quarter: 2017Q2

REPORT INFORMATION
  Report Type: Spontaneous
  Country: US (occurrence: US)
  Receive Date: 20170406
  Receipt Date: 20170626
  Transmission Date: 20170830
  Serious: Yes (Death, Hospitalization)
  Sender: FDA-Public Use
  Company Number: US-ACTELION-A-US2017-151869

PATIENT
  Age: 14 Month
  Sex: Male

DRUGS (21)
  1. FLECAINIDE [Concomitant]
     Active Substance: FLECAINIDE
  2. LEVETIRACETAM. [Concomitant]
     Active Substance: LEVETIRACETAM
     Dosage: 300 MG, UNK
  3. CLONIDINE. [Concomitant]
     Active Substance: CLONIDINE
     Dosage: 0.022 MG, UNK
  4. BUDESONIDE. [Concomitant]
     Active Substance: BUDESONIDE
     Dosage: 0.5 MG, UNK
     Route: 045
  5. TRACLEER [Suspect]
     Active Substance: BOSENTAN
     Indication: PULMONARY VASCULAR RESISTANCE ABNORMALITY
     Dosage: 15.6 MG, UNK
     Route: 048
     Dates: start: 20161017
  6. PROPRANOLOL [Concomitant]
     Active Substance: PROPRANOLOL HYDROCHLORIDE
     Dosage: 6.8 MG, UNK
  7. ESOMEPRAZOLE [Concomitant]
     Active Substance: ESOMEPRAZOLE
     Dosage: 10 MG, UNK
  8. ATROVENT [Concomitant]
     Active Substance: IPRATROPIUM BROMIDE
     Dosage: 0.26 MG, UNK
  9. DORNASE (STREPTODORNASE\STREPTOKINASE) [Concomitant]
     Active Substance: STREPTODORNASE\STREPTOKINASE
     Dosage: 2.5 MG, UNK
  10. OXYGEN. [Concomitant]
     Active Substance: OXYGEN
  11. VITAMIN D3 [Concomitant]
     Active Substance: CHOLECALCIFEROL
  12. TRACLEER [Suspect]
     Active Substance: BOSENTAN
     Indication: PULMONARY ARTERIAL HYPERTENSION
     Dosage: 15.625 MG, BID
     Route: 048
     Dates: start: 20161030
  13. NYSTATIN. [Concomitant]
     Active Substance: NYSTATIN
     Route: 061
  14. FUROSEMIDE. [Concomitant]
     Active Substance: FUROSEMIDE
     Dosage: 10 MG, UNK
  15. SILDENAFIL CITRATE. [Concomitant]
     Active Substance: SILDENAFIL CITRATE
     Dosage: 15 MG, UNK
  16. PHENOBARBITAL. [Concomitant]
     Active Substance: PHENOBARBITAL
     Dosage: 16 MG, UNK
  17. IPRATROPIUM [Concomitant]
     Active Substance: IPRATROPIUM
  18. ENALAPRIL [Concomitant]
     Active Substance: ENALAPRIL
     Dosage: 3 MG, UNK
  19. TRACLEER [Suspect]
     Active Substance: BOSENTAN
     Dosage: 16.5 MG, BID
     Route: 048
     Dates: start: 201612
  20. ENOXAPARINE SODIQUE [Concomitant]
     Active Substance: ENOXAPARIN SODIUM
  21. CALCIUM CARBONATE. [Concomitant]
     Active Substance: CALCIUM CARBONATE
     Dosage: 500 MG, UNK

REACTIONS (7)
  - Fluid overload [Unknown]
  - Pleural effusion [Unknown]
  - Cardiac failure congestive [Unknown]
  - Drug administered to patient of inappropriate age [Recovering/Resolving]
  - Left ventricular failure [Fatal]
  - Cardiac failure [Recovering/Resolving]
  - Condition aggravated [Unknown]
